FAERS Safety Report 14426989 (Version 1)
Quarter: 2018Q1

REPORT INFORMATION
  Report Type: Spontaneous
  Country: US (occurrence: US)
  Receive Date: 20180123
  Receipt Date: 20180123
  Transmission Date: 20180509
  Serious: No
  Sender: FDA-Public Use
  Company Number: US-ST. RENATUS-2017STR00054

PATIENT
  Age: 47 Year
  Sex: Female

DRUGS (1)
  1. KOVANAZE [Suspect]
     Active Substance: OXYMETAZOLINE HYDROCHLORIDE\TETRACAINE HYDROCHLORIDE
     Indication: MIGRAINE
     Dosage: UNK, TWICE
     Route: 045
     Dates: start: 20171212, end: 20171212

REACTIONS (4)
  - Expired product administered [Recovered/Resolved]
  - Ear pain [Not Recovered/Not Resolved]
  - Off label use [Recovered/Resolved]
  - Oropharyngeal pain [Not Recovered/Not Resolved]

NARRATIVE: CASE EVENT DATE: 20171212
